FAERS Safety Report 7078034-0 (Version None)
Quarter: 2010Q4

REPORT INFORMATION
  Report Type: 
  Country: None (occurrence: None)
  Receive Date: 20101102
  Receipt Date: 20101025
  Transmission Date: 20110411
  Serious: Yes (Hospitalization)
  Sender: FDA-Public Use
  Company Number: FR-BIOGENIDEC-2010BI036947

PATIENT
  Age: 50 Year
  Sex: Male

DRUGS (4)
  1. TYSABRI [Suspect]
     Indication: MULTIPLE SCLEROSIS
     Route: 042
     Dates: start: 20071019
  2. BROMAZEPAM [Concomitant]
     Indication: ANXIETY
     Dates: start: 20060101
  3. CITALOPRAM HYDROBROMIDE [Concomitant]
     Indication: DEPRESSION
     Dates: start: 20070101
  4. BACLOFENE [Concomitant]
     Indication: MUSCLE SPASTICITY
     Dates: start: 20050101

REACTIONS (1)
  - KNEE ARTHROPLASTY [None]
